FAERS Safety Report 8444344-5 (Version None)
Quarter: 2012Q2

REPORT INFORMATION
  Report Type: 
  Country: None (occurrence: None)
  Receive Date: 20120611
  Receipt Date: 20120514
  Transmission Date: 20120825
  Serious: Yes (Life-Threatening)
  Sender: FDA-Public Use
  Company Number: 001238715A

PATIENT
  Age: 28 Year
  Sex: Female

DRUGS (1)
  1. PROACTIV 90 DAY KIT [Suspect]
     Indication: ACNE
     Dosage: ONCE DAILY DERMAL
     Dates: start: 20120404, end: 20120405

REACTIONS (4)
  - URTICARIA [None]
  - ERYTHEMA [None]
  - DYSPNOEA [None]
  - BURNING SENSATION [None]
